FAERS Safety Report 17113011 (Version 6)
Quarter: 2020Q2

REPORT INFORMATION
  Report Type: Report from Study
  Country: US (occurrence: US)
  Receive Date: 20191204
  Receipt Date: 20200420
  Transmission Date: 20200713
  Serious: Yes (Death, Hospitalization, Other)
  Sender: FDA-Public Use
  Company Number: US-ACTELION-A-NJ2019-186991

PATIENT
  Age: 83 Year
  Sex: Female
  Weight: 52.61 kg

DRUGS (6)
  1. TYVASO [Suspect]
     Active Substance: TREPROSTINIL
     Indication: PRODUCT USED FOR UNKNOWN INDICATION
     Route: 065
  2. ELIQUIS [Concomitant]
     Active Substance: APIXABAN
  3. OPSUMIT [Suspect]
     Active Substance: MACITENTAN
     Indication: PULMONARY HYPERTENSION
     Dosage: 10 MG, QD
     Route: 048
     Dates: start: 20190204, end: 20200116
  4. TYVASO [Suspect]
     Active Substance: TREPROSTINIL
     Dosage: 2 BREATHS
     Route: 065
  5. ADEMPAS [Concomitant]
     Active Substance: RIOCIGUAT
  6. OXYGEN. [Concomitant]
     Active Substance: OXYGEN

REACTIONS (32)
  - Product use in unapproved indication [Unknown]
  - Joint swelling [Unknown]
  - Cough [Unknown]
  - Fluid retention [Unknown]
  - Pulmonary oedema [Recovered/Resolved with Sequelae]
  - Oedema peripheral [Recovered/Resolved]
  - Limb discomfort [Recovered/Resolved]
  - Rhinorrhoea [Unknown]
  - Arthritis [Unknown]
  - Aspiration joint [Unknown]
  - Atrial fibrillation [Recovered/Resolved with Sequelae]
  - Chest discomfort [Recovered/Resolved with Sequelae]
  - Dizziness [Unknown]
  - Pulmonary hypertension [Fatal]
  - Asthenia [Recovered/Resolved]
  - Dyspnoea exertional [Unknown]
  - Pain of skin [Unknown]
  - Peripheral swelling [Recovered/Resolved with Sequelae]
  - Chronic left ventricular failure [Recovered/Resolved]
  - Gait disturbance [Unknown]
  - Skin discomfort [Unknown]
  - Feeling abnormal [Unknown]
  - Unevaluable event [Unknown]
  - Chronic obstructive pulmonary disease [Recovered/Resolved with Sequelae]
  - Nasal congestion [Unknown]
  - Right ventricular failure [Fatal]
  - Dyspnoea [Fatal]
  - Pulmonary embolism [Recovered/Resolved with Sequelae]
  - Deep vein thrombosis [Recovered/Resolved with Sequelae]
  - Fall [Recovered/Resolved]
  - Gait inability [Unknown]
  - Blood pressure fluctuation [Unknown]

NARRATIVE: CASE EVENT DATE: 201907
